FAERS Safety Report 5847749-1 (Version None)
Quarter: 2008Q3

REPORT INFORMATION
  Report Type: 
  Country: None (occurrence: None)
  Receive Date: 20080818
  Receipt Date: 20080811
  Transmission Date: 20090109
  Serious: Yes (Hospitalization)
  Sender: FDA-Public Use
  Company Number: US-KINGPHARMUSA00001-K200800943

PATIENT

DRUGS (3)
  1. CORGARD [Suspect]
     Route: 064
     Dates: start: 20070101, end: 20070101
  2. KARDEGIC                           /00002703/ [Suspect]
     Route: 064
  3. HEPARIN [Concomitant]
     Dates: start: 20070101, end: 20070101

REACTIONS (8)
  - ARRHYTHMIA [None]
  - DRUG EXPOSURE DURING PREGNANCY [None]
  - FOETAL GROWTH RETARDATION [None]
  - HYPOXIA [None]
  - NEONATAL RESPIRATORY DISTRESS SYNDROME [None]
  - OLIGOHYDRAMNIOS [None]
  - PREMATURE BABY [None]
  - SMALL FOR DATES BABY [None]
